FAERS Safety Report 5870257-9 (Version None)
Quarter: 2008Q3

REPORT INFORMATION
  Report Type: 
  Country: None (occurrence: None)
  Receive Date: 20080904
  Receipt Date: 20070816
  Transmission Date: 20090109
  Serious: No
  Sender: FDA-Public Use
  Company Number: US-BRISTOL-MYERS SQUIBB COMPANY-13868898

PATIENT
  Age: 55 Year
  Sex: Male

DRUGS (11)
  1. DEFINITY [Suspect]
     Indication: EXERCISE TEST
     Dosage: DOSE- 1 VIAL DILUTED WITH 8CC NS(1 DOSAGE FORM=5CC TOTAL VOLUME)
     Route: 042
     Dates: start: 20070719
  2. ISODRIL [Concomitant]
  3. DIGOXIN [Concomitant]
  4. PLAVIX [Concomitant]
  5. ASPIRIN [Concomitant]
  6. COREG [Concomitant]
  7. NEXIUM [Concomitant]
  8. LASIX [Concomitant]
  9. ALDACTONE [Concomitant]
  10. INSULIN [Concomitant]
  11. KLONOPIN [Concomitant]

REACTIONS (1)
  - BACK PAIN [None]
